FAERS Safety Report 18686156 (Version 1)
Quarter: 2020Q4

REPORT INFORMATION
  Report Type: Spontaneous
  Country: US (occurrence: US)
  Receive Date: 20201231
  Receipt Date: 20201231
  Transmission Date: 20210114
  Serious: Yes (Other)
  Sender: FDA-Public Use
  Company Number: US-AUROBINDO-AUR-APL-2020-063772

PATIENT
  Age: 74 Year
  Sex: Female
  Weight: 63.6 kg

DRUGS (29)
  1. TIZANIDINE HYDROCHLORIDE. [Interacting]
     Active Substance: TIZANIDINE HYDROCHLORIDE
     Indication: MUSCLE SPASMS
  2. BACLOFEN. [Concomitant]
     Active Substance: BACLOFEN
     Indication: PAIN
     Dosage: 10 MILLIGRAM, 3 TIMES A DAY
     Route: 048
  3. LIDOCAINE. [Concomitant]
     Active Substance: LIDOCAINE
     Indication: MUSCLE SPASMS
  4. DEXAMETHASONE. [Concomitant]
     Active Substance: DEXAMETHASONE
     Indication: PAIN
     Dosage: 20 MILLIGRAM, DAILY
     Route: 042
  5. BORTEZOMIB. [Interacting]
     Active Substance: BORTEZOMIB
     Indication: PLASMA CELL MYELOMA
     Dosage: 2.3 MILLIGRAM (DAY 16)
     Route: 058
  6. LABETALOL [Concomitant]
     Active Substance: LABETALOL\LABETALOL HYDROCHLORIDE
     Dosage: 200 MILLIGRAM, TWO TIMES A DAY (DAY 19 - DAY 29)
     Route: 048
  7. AMLODIPINE [Concomitant]
     Active Substance: AMLODIPINE BESYLATE
     Indication: HYPERTENSION
     Dosage: 5 MILLIGRAM, DAILY (DAY 12 - DAY 29)
     Route: 048
  8. OXYCODONE [Concomitant]
     Active Substance: OXYCODONE
     Indication: PAIN
     Dosage: 10 MILLIGRAM, 3 TIMES A DAY (DAY 19-DAY 29)
     Route: 048
  9. DEXAMETHASONE. [Concomitant]
     Active Substance: DEXAMETHASONE
     Indication: PLASMA CELL MYELOMA
     Dosage: 4 MILLIGRAM EVERY 6 TO 8 HOURS (DAY 21-DAY 28)
     Route: 048
  10. DABIGATRAN [Concomitant]
     Active Substance: DABIGATRAN
     Indication: ATRIAL FIBRILLATION
     Dosage: 150 MILLIGRAM, TWO TIMES A DAY
     Route: 048
  11. LABETALOL [Concomitant]
     Active Substance: LABETALOL\LABETALOL HYDROCHLORIDE
     Indication: HYPERTENSION
     Dosage: 200 MILLIGRAM, TWO TIMES A DAY
     Route: 048
  12. HYDRALAZINE [Concomitant]
     Active Substance: HYDRALAZINE HYDROCHLORIDE
     Indication: HYPERTENSION
     Dosage: 25 MILLIGRAM, TWO TIMES A DAY (DAY 11 - DAY 29)
     Route: 048
  13. ACETAMINOPHEN. [Concomitant]
     Active Substance: ACETAMINOPHEN
     Indication: MUSCLE SPASMS
  14. ACYCLOVIR. [Concomitant]
     Active Substance: ACYCLOVIR
     Indication: PROPHYLAXIS
     Dosage: 400 MILLIGRAM, TWO TIMES A DAY (DAY 16-DAY 29)
     Route: 048
  15. TIZANIDINE HYDROCHLORIDE. [Suspect]
     Active Substance: TIZANIDINE HYDROCHLORIDE
     Indication: PAIN
     Dosage: 2 MILLIGRAM, 3 TIMES A DAY (DAY 9-DAY 11)
     Route: 048
  16. BORTEZOMIB. [Interacting]
     Active Substance: BORTEZOMIB
     Dosage: 1.3 MILLIGRAM/SQ. METER ON DAYS 1 ,4, AND 8
     Route: 058
  17. ACETAMINOPHEN. [Concomitant]
     Active Substance: ACETAMINOPHEN
     Indication: PAIN
     Dosage: 650 MILLIGRAM EVERY FOUR HOURS AS NEEDED
     Route: 048
  18. ACETAMINOPHEN;HYDROCODONE [Concomitant]
     Active Substance: ACETAMINOPHEN\HYDROCODONE
     Indication: MUSCLE SPASMS
  19. METHADONE [Concomitant]
     Active Substance: METHADONE HYDROCHLORIDE
     Indication: MUSCLE SPASMS
  20. DEXAMETHASONE. [Concomitant]
     Active Substance: DEXAMETHASONE
     Indication: MUSCLE SPASMS
     Dosage: 4 MILLIGRAM, DAILY (DAY 16-DAY 20)
     Route: 042
  21. PANTOPRAZOLE [Concomitant]
     Active Substance: PANTOPRAZOLE
     Indication: PROPHYLAXIS
     Dosage: 40 MILLIGRAM, DAILY (DAY 3-DAY 29)
     Route: 048
  22. ACETAMINOPHEN;HYDROCODONE [Concomitant]
     Active Substance: ACETAMINOPHEN\HYDROCODONE
     Indication: PAIN
     Dosage: 325MG/5 MG EVERY FOUR HOURS AS NEEDED (DAY 2 - DAY 14)
     Route: 048
  23. LABETALOL [Concomitant]
     Active Substance: LABETALOL\LABETALOL HYDROCHLORIDE
     Dosage: 200 MILLIGRAM, TWO TIMES A DAY (DAY 0 - DAY 11)
     Route: 048
  24. METHADONE [Concomitant]
     Active Substance: METHADONE HYDROCHLORIDE
     Indication: PAIN
     Dosage: 5 MILLIGRAM EVERY 6-8 HOURS (DAY 10-DAY 29)
     Route: 048
  25. LABETALOL [Concomitant]
     Active Substance: LABETALOL\LABETALOL HYDROCHLORIDE
     Dosage: 300 MILLIGRAM, TWO TIMES A DAY (DAY 11 - DAY 19)
     Route: 048
  26. BACLOFEN. [Concomitant]
     Active Substance: BACLOFEN
     Indication: MUSCLE SPASMS
     Dosage: 10 MILLIGRAM, 3 TIMES A DAY (DAY 14 - DAY 21)
     Route: 048
  27. OXYCODONE [Concomitant]
     Active Substance: OXYCODONE
     Indication: MUSCLE SPASMS
     Dosage: 10 MILLIGRAM EVERY 4 HOURS WHEN NEEDED IN SEVERE PAIN (DAY 22-DAY 29)
     Route: 048
  28. LIDOCAINE. [Concomitant]
     Active Substance: LIDOCAINE
     Indication: PAIN
     Dosage: UNK, DAILY (DAY 14-DAY 19)
     Route: 062
  29. DABIGATRAN [Concomitant]
     Active Substance: DABIGATRAN
     Dosage: 150 MILLIGRAM, TWO TIMES A DAY (DAY 12 - DAY 29)
     Route: 048

REACTIONS (4)
  - Hepatitis [Unknown]
  - Hepatic enzyme increased [Recovering/Resolving]
  - Drug interaction [Unknown]
  - Fatigue [Unknown]
